FAERS Safety Report 24160300 (Version 4)
Quarter: 2025Q1

REPORT INFORMATION
  Report Type: Spontaneous
  Country: US (occurrence: US)
  Receive Date: 20240801
  Receipt Date: 20250109
  Transmission Date: 20250409
  Serious: No
  Sender: BIOGEN
  Company Number: US-BIOGEN-2024BI01275784

PATIENT
  Age: 65 Year
  Sex: Female

DRUGS (3)
  1. TYSABRI [Suspect]
     Active Substance: NATALIZUMAB
     Indication: Multiple sclerosis
     Route: 050
     Dates: start: 20101222
  2. TYSABRI [Suspect]
     Active Substance: NATALIZUMAB
     Route: 050
     Dates: start: 20070425, end: 20091111
  3. TYSABRI [Suspect]
     Active Substance: NATALIZUMAB
     Route: 050
     Dates: start: 20250106

REACTIONS (3)
  - Prescribed underdose [Not Recovered/Not Resolved]
  - Musculoskeletal disorder [Unknown]
  - Influenza [Unknown]

NARRATIVE: CASE EVENT DATE: 20250106
